FAERS Safety Report 8190255-2 (Version None)
Quarter: 2012Q1

REPORT INFORMATION
  Report Type: 
  Country: None (occurrence: None)
  Receive Date: 20120305
  Receipt Date: 20120220
  Transmission Date: 20120608
  Serious: Yes (Hospitalization, Other)
  Sender: FDA-Public Use
  Company Number: CIP11000516

PATIENT
  Age: 57 Year
  Sex: Female
  Weight: 68 kg

DRUGS (15)
  1. FOLIC ACID [Concomitant]
  2. CLARINEX /01202601/ (LORATADINE, PSEUDOEPHEDRINE SULFATE) [Concomitant]
  3. VALTREX [Concomitant]
  4. PREDNISONE TAB [Concomitant]
  5. LISINOPRIL [Concomitant]
  6. NASONEX [Concomitant]
  7. ACTONEL [Suspect]
     Indication: OSTEOPENIA
     Dosage: 150 MG ONCE MONTHLY, ORAL
     Route: 048
     Dates: start: 20090501, end: 20100122
  8. LEVOTHYROXINE SODIUM [Concomitant]
  9. METHOTREXATE [Concomitant]
  10. ASPIRIN [Concomitant]
  11. FERROUS SULFATE TAB [Concomitant]
  12. DYAZIDE [Concomitant]
  13. PANTOPRAZOLE SODIUM (PANTOPRAZOLE SODIUM SESQUIHYDRATE) [Concomitant]
  14. NABUMETONE [Concomitant]
  15. VITAMIN D [Concomitant]

REACTIONS (8)
  - FALL [None]
  - FRACTURE DISPLACEMENT [None]
  - ANAEMIA POSTOPERATIVE [None]
  - URINARY TRACT INFECTION [None]
  - PAIN IN EXTREMITY [None]
  - STRESS FRACTURE [None]
  - FRACTURE DELAYED UNION [None]
  - FEMUR FRACTURE [None]
